FAERS Safety Report 21266459 (Version 1)
Quarter: 2022Q3

REPORT INFORMATION
  Report Type: Spontaneous
  Country: LB (occurrence: LB)
  Receive Date: 20220829
  Receipt Date: 20220829
  Transmission Date: 20221026
  Serious: Yes (Hospitalization, Other)
  Sender: FDA-Public Use
  Company Number: LB-PFIZER INC-PV202200047493

PATIENT
  Age: 64 Year
  Sex: Female

DRUGS (1)
  1. PIPERACILLIN SODIUM\TAZOBACTAM SODIUM [Suspect]
     Active Substance: PIPERACILLIN SODIUM\TAZOBACTAM SODIUM
     Dosage: 4.5 G, 4X/DAY
     Route: 042

REACTIONS (6)
  - Dyspnoea [Unknown]
  - Condition aggravated [Unknown]
  - Oxygen saturation decreased [Unknown]
  - Endotracheal intubation [Unknown]
  - Pyrexia [Unknown]
  - Productive cough [Unknown]

NARRATIVE: CASE EVENT DATE: 20200814
